FAERS Safety Report 10719103 (Version 2)
Quarter: 2015Q1

REPORT INFORMATION
  Report Type: Spontaneous
  Country: US (occurrence: US)
  Receive Date: 20150119
  Receipt Date: 20150119
  Transmission Date: 20150721
  Serious: No
  Sender: FDA-Public Use
  Company Number: US-UNITED THERAPEUTICS-UNT-2014-003387

PATIENT
  Sex: Female
  Weight: 53.61 kg

DRUGS (4)
  1. WARFARIN [Concomitant]
     Active Substance: WARFARIN
     Indication: PRODUCT USED FOR UNKNOWN INDICATION
  2. REMODULIN [Suspect]
     Active Substance: TREPROSTINIL
     Indication: COR PULMONALE CHRONIC
     Dosage: 0.059 ?G/KG/MIN, CONTINUING
     Route: 041
     Dates: start: 20020621
  3. LETAIRIS [Concomitant]
     Active Substance: AMBRISENTAN
     Indication: PRODUCT USED FOR UNKNOWN INDICATION
  4. ADCIRCA [Suspect]
     Active Substance: TADALAFIL
     Indication: PRODUCT USED FOR UNKNOWN INDICATION
     Route: 065

REACTIONS (8)
  - Oral pain [Unknown]
  - Mood altered [Unknown]
  - Feeling hot [Unknown]
  - Feeling cold [Unknown]
  - Flushing [Unknown]
  - Swollen tongue [Unknown]
  - Condition aggravated [Unknown]
  - Oral candidiasis [Unknown]
